FAERS Safety Report 20691425 (Version 5)
Quarter: 2023Q1

REPORT INFORMATION
  Report Type: Report from Study
  Country: MY (occurrence: MY)
  Receive Date: 20220408
  Receipt Date: 20230223
  Transmission Date: 20230418
  Serious: Yes (Hospitalization)
  Sender: FDA-Public Use
  Company Number: MY-JNJFOC-20220403611

PATIENT
  Age: 63 Year
  Sex: Female
  Weight: 70 kg

DRUGS (31)
  1. AMIVANTAMAB [Suspect]
     Active Substance: AMIVANTAMAB
     Indication: Non-small cell lung cancer metastatic
     Dosage: 700 MG ON 11-MAR-2022 (C8D15)
     Route: 042
     Dates: start: 20210813, end: 20220311
  2. AMIVANTAMAB [Suspect]
     Active Substance: AMIVANTAMAB
     Dosage: C11D1
     Route: 042
     Dates: start: 20220520
  3. CELEBREX [Concomitant]
     Active Substance: CELECOXIB
     Indication: Oedema peripheral
     Route: 048
     Dates: start: 20210827
  4. TRIAMCINOLONE ACETONIDE [Concomitant]
     Active Substance: TRIAMCINOLONE ACETONIDE
     Indication: Mucosal inflammation
     Dosage: 1 DOSAGE
     Route: 061
     Dates: start: 20211103
  5. SILVER NITRATE [Concomitant]
     Active Substance: SILVER NITRATE
     Indication: Paronychia
     Dosage: 0.1 DOSAGE
     Route: 061
     Dates: start: 20211203
  6. PANTOPRAZOLE [Concomitant]
     Active Substance: PANTOPRAZOLE
     Indication: Prophylaxis against gastrointestinal ulcer
     Route: 048
     Dates: start: 20211221
  7. PANTOPRAZOLE [Concomitant]
     Active Substance: PANTOPRAZOLE
     Route: 048
     Dates: start: 20220223, end: 20220331
  8. BETAMETHASONE VALERATE\FUSIDIC ACID [Concomitant]
     Active Substance: BETAMETHASONE VALERATE\FUSIDIC ACID
     Indication: Pruritus
     Dosage: 1 DOSAGE
     Route: 061
     Dates: start: 20220104
  9. BETAMETHASONE VALERATE\FUSIDIC ACID [Concomitant]
     Active Substance: BETAMETHASONE VALERATE\FUSIDIC ACID
     Indication: Rash
  10. BETAMETHASONE VALERATE\FUSIDIC ACID [Concomitant]
     Active Substance: BETAMETHASONE VALERATE\FUSIDIC ACID
     Indication: Skin abrasion
  11. BETAMETHASONE VALERATE\FUSIDIC ACID [Concomitant]
     Active Substance: BETAMETHASONE VALERATE\FUSIDIC ACID
     Indication: Paronychia
  12. CLOBETASOL PROPIONATE [Concomitant]
     Active Substance: CLOBETASOL PROPIONATE
     Indication: Rash
     Dosage: 1 DOSAGE
     Route: 061
     Dates: start: 20220125
  13. HYALURONATE SODIUM [Concomitant]
     Active Substance: HYALURONATE SODIUM
     Indication: Dry eye
     Dosage: 1 DOSAGE
     Route: 047
     Dates: start: 20220125
  14. POTASSIUM PERMANGANATE [Concomitant]
     Active Substance: POTASSIUM PERMANGANATE
     Indication: Rash
     Dosage: 0.1 DOSAGE
     Route: 061
     Dates: start: 20220125, end: 20220323
  15. POTASSIUM PERMANGANATE [Concomitant]
     Active Substance: POTASSIUM PERMANGANATE
     Indication: Staphylococcal infection
  16. POTASSIUM PERMANGANATE [Concomitant]
     Active Substance: POTASSIUM PERMANGANATE
     Indication: Skin lesion
  17. POVIDONE-IODINE [Concomitant]
     Active Substance: POVIDONE-IODINE
     Indication: Paronychia
     Dosage: 1 DOSAGE
     Route: 061
     Dates: start: 20220125
  18. LOTEMAX [Concomitant]
     Active Substance: LOTEPREDNOL ETABONATE
     Indication: Dry eye
     Dosage: 1 DOSAGE
     Route: 047
     Dates: start: 20220128
  19. TONIMER LAB: NORMAL [Concomitant]
     Indication: Dry eye
     Route: 047
     Dates: start: 20220128
  20. ACETAMINOPHEN [Concomitant]
     Active Substance: ACETAMINOPHEN
     Indication: Pain prophylaxis
     Route: 048
     Dates: start: 20220128
  21. DUPHALAC [Concomitant]
     Active Substance: LACTULOSE
     Indication: Constipation prophylaxis
     Route: 048
     Dates: start: 20220211
  22. DUPHALAC [Concomitant]
     Active Substance: LACTULOSE
     Indication: Constipation
     Route: 048
     Dates: start: 20220225, end: 20220309
  23. CHLORPHENIRAMINE [Concomitant]
     Active Substance: CHLORPHENIRAMINE
     Indication: Pruritus
     Route: 048
     Dates: start: 20220211
  24. CHLORPHENIRAMINE [Concomitant]
     Active Substance: CHLORPHENIRAMINE
     Indication: Skin lesion
  25. HYALURONATE SODIUM [Concomitant]
     Active Substance: HYALURONATE SODIUM
     Indication: Dry eye
     Route: 047
     Dates: start: 20220215
  26. HYALURONATE SODIUM [Concomitant]
     Active Substance: HYALURONATE SODIUM
     Indication: Conjunctival disorder
  27. SURGIBATH [Concomitant]
     Indication: Pruritus
     Route: 061
     Dates: start: 20220215
  28. SURGIBATH [Concomitant]
     Indication: Paronychia
  29. ISOTRETINOIN [Concomitant]
     Active Substance: ISOTRETINOIN
     Indication: Dermatitis acneiform
     Route: 048
     Dates: start: 20220308, end: 20220326
  30. VITBION FORTE [Concomitant]
     Indication: Paraesthesia
     Route: 048
     Dates: start: 20220311
  31. DIOVAN [Concomitant]
     Active Substance: VALSARTAN
     Indication: Mitral valve incompetence
     Route: 048
     Dates: start: 20220128

REACTIONS (1)
  - Achromobacter infection [Recovering/Resolving]

NARRATIVE: CASE EVENT DATE: 20220323
